FAERS Safety Report 18776615 (Version 1)
Quarter: 2021Q1

REPORT INFORMATION
  Report Type: Report from Study
  Country: KR (occurrence: KR)
  Receive Date: 20210122
  Receipt Date: 20210122
  Transmission Date: 20210419
  Serious: Yes (Other)
  Sender: FDA-Public Use
  Company Number: KR-MYLANLABS-2021M1004373

PATIENT
  Age: 48 Year
  Sex: Female

DRUGS (2)
  1. CLONAZEPAM. [Interacting]
     Active Substance: CLONAZEPAM
     Indication: SCHIZOPHRENIA
     Dosage: 2 MILLIGRAM
     Route: 065
  2. CLOZAPINE. [Suspect]
     Active Substance: CLOZAPINE
     Indication: SCHIZOPHRENIA
     Dosage: 300 MILLIGRAM
     Route: 065

REACTIONS (7)
  - Vision blurred [Unknown]
  - Drug interaction [Unknown]
  - Dysuria [Unknown]
  - Constipation [Unknown]
  - Orthostatic hypotension [Unknown]
  - Electrocardiogram QT prolonged [Unknown]
  - Salivary hypersecretion [Unknown]
